FAERS Safety Report 18838362 (Version 4)
Quarter: 2022Q1

REPORT INFORMATION
  Report Type: Spontaneous
  Country: US (occurrence: US)
  Receive Date: 20210203
  Receipt Date: 20220328
  Transmission Date: 20220423
  Serious: No
  Sender: FDA-Public Use
  Company Number: US-PFIZER INC-2018334480

PATIENT
  Age: 13 Year
  Sex: Male
  Weight: 54 kg

DRUGS (2)
  1. GENOTROPIN [Suspect]
     Active Substance: SOMATROPIN
     Indication: Growth hormone deficiency
     Dosage: 2.6 MG, 1X/DAY
  2. GENOTROPIN [Suspect]
     Active Substance: SOMATROPIN
     Dosage: 3.4 MG, DAILY
     Dates: start: 20170904

REACTIONS (2)
  - Product dose omission issue [Unknown]
  - Device breakage [Unknown]

NARRATIVE: CASE EVENT DATE: 20180801
